FAERS Safety Report 5903803-7 (Version None)
Quarter: 2008Q3

REPORT INFORMATION
  Report Type: 
  Country: None (occurrence: None)
  Receive Date: 20080930
  Receipt Date: 20080915
  Transmission Date: 20090109
  Serious: Yes (Other)
  Sender: FDA-Public Use
  Company Number: US-GENENTECH-268721

PATIENT
  Age: 46 Year
  Sex: Female

DRUGS (3)
  1. BEVACIZUMAB [Suspect]
     Indication: GLIOBLASTOMA MULTIFORME
     Dosage: 10 MG/KG, Q2W
     Route: 042
  2. TEMOZOLOMIDE [Suspect]
     Indication: GLIOBLASTOMA MULTIFORME
     Dosage: 75 MG/M2, QD
     Route: 048
  3. TEMOZOLOMIDE [Suspect]
     Dosage: 200 MG/M2, UNK

REACTIONS (5)
  - DEEP VEIN THROMBOSIS [None]
  - INFECTION [None]
  - INTRACRANIAL HYPOTENSION [None]
  - PULMONARY EMBOLISM [None]
  - WOUND DECOMPOSITION [None]
